FAERS Safety Report 7250116-X (Version None)
Quarter: 2011Q1

REPORT INFORMATION
  Report Type: 
  Country: None (occurrence: None)
  Receive Date: 20110128
  Receipt Date: 20110104
  Transmission Date: 20110831
  Serious: Yes (Other)
  Sender: FDA-Public Use
  Company Number: US-BAYER-2010-006887

PATIENT
  Sex: Female
  Weight: 108.84 kg

DRUGS (19)
  1. CYTOXAN [Concomitant]
  2. NORVASC [Concomitant]
  3. HYPAQUE-M [MEGLUMINE AMIDOTRIZOATE] [Suspect]
     Indication: COMPUTERISED TOMOGRAM ABDOMEN
     Dosage: UNK
     Route: 048
     Dates: start: 20041006, end: 20041006
  4. CONTRAST MEDIA [Concomitant]
     Indication: COMPUTERISED TOMOGRAM ABDOMEN
     Dosage: UNK
     Route: 048
     Dates: start: 20050506, end: 20050506
  5. CONTRAST MEDIA [Concomitant]
     Dosage: UNK
     Route: 042
     Dates: start: 20050506, end: 20050506
  6. IRON [Concomitant]
  7. ASPIRIN [Concomitant]
  8. MAGNEVIST [Suspect]
     Indication: NUCLEAR MAGNETIC RESONANCE IMAGING ABDOMINAL
     Dosage: DAILY DOSE 20 ML
     Dates: start: 20070905, end: 20070905
  9. GADOLINIUM IN UNSPECIFIED DRUG [Suspect]
     Dosage: UNK
     Dates: start: 20050509, end: 20050509
  10. COUMADIN [Concomitant]
  11. EPOGEN [Concomitant]
  12. CONTRAST MEDIA [Concomitant]
     Indication: COMPUTERISED TOMOGRAM HEAD
     Dosage: UNK
     Route: 042
     Dates: start: 20041012, end: 20041012
  13. LOPRESSOR [Concomitant]
  14. LISINOPRIL [Concomitant]
  15. GADOLINIUM IN UNSPECIFIED DRUG [Suspect]
     Indication: NUCLEAR MAGNETIC RESONANCE IMAGING ABDOMINAL
     Dosage: UNK
     Dates: start: 20041001, end: 20041001
  16. GADOLINIUM IN UNSPECIFIED DRUG [Suspect]
     Dosage: UNK
     Dates: start: 20041007, end: 20041007
  17. GADOLINIUM IN UNSPECIFIED DRUG [Suspect]
     Dosage: UNK
     Route: 042
     Dates: start: 20041118, end: 20041118
  18. OMNIPAQUE 140 [Suspect]
     Indication: COMPUTERISED TOMOGRAM ABDOMEN
     Dosage: 150 ML, UNK
     Dates: start: 20040930, end: 20040930
  19. IMMUNE GLOBULIN NOS [Concomitant]
     Route: 042

REACTIONS (25)
  - ERYTHEMA [None]
  - SKIN HYPERTROPHY [None]
  - SKIN HYPERPIGMENTATION [None]
  - RENAL CORTICAL NECROSIS [None]
  - NEPHROGENIC SYSTEMIC FIBROSIS [None]
  - ARTHRALGIA [None]
  - RASH PAPULAR [None]
  - LIMB DISCOMFORT [None]
  - RENAL TUBULAR NECROSIS [None]
  - SCAR [None]
  - RASH ERYTHEMATOUS [None]
  - MUSCULOSKELETAL STIFFNESS [None]
  - JOINT STIFFNESS [None]
  - SKIN DISORDER [None]
  - SKIN DISCOLOURATION [None]
  - SKIN INDURATION [None]
  - UPPER EXTREMITY MASS [None]
  - BURNING SENSATION [None]
  - RENAL FAILURE CHRONIC [None]
  - RENAL FAILURE ACUTE [None]
  - OEDEMA PERIPHERAL [None]
  - PROTEINURIA [None]
  - MUSCULOSKELETAL PAIN [None]
  - PAIN IN EXTREMITY [None]
  - SOFT TISSUE DISORDER [None]
